FAERS Safety Report 20246444 (Version 5)
Quarter: 2022Q2

REPORT INFORMATION
  Report Type: Spontaneous
  Country: PT (occurrence: PT)
  Receive Date: 20211229
  Receipt Date: 20220519
  Transmission Date: 20220721
  Serious: Yes (Life-Threatening, Hospitalization, Other)
  Sender: FDA-Public Use
  Company Number: PT-MYLANLABS-2021M1080304

PATIENT
  Age: 66 Year
  Sex: Female

DRUGS (11)
  1. OLANZAPINE [Suspect]
     Active Substance: OLANZAPINE
     Indication: Bipolar disorder
     Dosage: UNK
  2. LEVOTHYROXINE SODIUM [Suspect]
     Active Substance: LEVOTHYROXINE SODIUM
     Indication: Hypothyroidism
     Dosage: UNK
  3. VALPROATE SODIUM [Suspect]
     Active Substance: VALPROATE SODIUM
     Indication: Bipolar disorder
     Dosage: UNK
  4. BIPERIDEN [Suspect]
     Active Substance: BIPERIDEN
     Indication: Bipolar disorder
     Dosage: UNK
  5. LITHIUM CARBONATE [Suspect]
     Active Substance: LITHIUM CARBONATE
     Indication: Bipolar disorder
     Dosage: UNK
  6. VALPROATE SODIUM [Suspect]
     Active Substance: VALPROATE SODIUM
     Indication: Product used for unknown indication
     Dosage: UNK
  7. LITHIUM CARBONATE [Suspect]
     Active Substance: LITHIUM CARBONATE
     Indication: Product used for unknown indication
     Dosage: UNK
  8. AMANTADINE [Suspect]
     Active Substance: AMANTADINE
     Indication: Product used for unknown indication
     Dosage: UNK
  9. AMANTADINE [Concomitant]
     Active Substance: AMANTADINE
     Indication: Bipolar disorder
     Dosage: UNK
  10. LITHIUM [Concomitant]
     Active Substance: LITHIUM
     Indication: Hypothyroidism
     Dosage: UNK
  11. VALPROIC ACID [Concomitant]
     Active Substance: VALPROIC ACID
     Dosage: UNK
     Route: 048

REACTIONS (23)
  - Hyperlactacidaemia [Unknown]
  - Hyperkalaemia [Unknown]
  - Hypernatraemia [Unknown]
  - Leukocytosis [Unknown]
  - Hepatic cytolysis [Unknown]
  - Neuroleptic malignant syndrome [Unknown]
  - Hyperhidrosis [Unknown]
  - Dehydration [Unknown]
  - Tachycardia [Unknown]
  - Bradykinesia [Unknown]
  - Muscle rigidity [Unknown]
  - Acute kidney injury [Unknown]
  - Pyrexia [Unknown]
  - Hyperglycaemia [Unknown]
  - Aphasia [Unknown]
  - Alkalosis [Unknown]
  - Malnutrition [Unknown]
  - Fatigue [Unknown]
  - Neutrophilia [Unknown]
  - Pupil fixed [Unknown]
  - Musculoskeletal stiffness [Unknown]
  - Hypertension [Unknown]
  - Mutism [Unknown]
